FAERS Safety Report 16444507 (Version 2)
Quarter: 2019Q3

REPORT INFORMATION
  Report Type: Spontaneous
  Country: US (occurrence: US)
  Receive Date: 20190618
  Receipt Date: 20190718
  Transmission Date: 20191004
  Serious: No
  Sender: FDA-Public Use
  Company Number: US-ASTRAZENECA-2019SE76898

PATIENT
  Age: 4532 Week
  Sex: Male
  Weight: 77.1 kg

DRUGS (3)
  1. BYETTA [Suspect]
     Active Substance: EXENATIDE
     Indication: TYPE 2 DIABETES MELLITUS
     Dosage: 10 MG-USING THE BYETTA 2 OR 3 TIMES A WEEK, NEAR
     Route: 058
     Dates: end: 201902
  2. BYETTA [Suspect]
     Active Substance: EXENATIDE
     Indication: TYPE 2 DIABETES MELLITUS
     Dosage: DISCONTINUED
     Route: 058
     Dates: end: 201902
  3. BYDUREON BCISE [Suspect]
     Active Substance: EXENATIDE
     Indication: TYPE 2 DIABETES MELLITUS
     Route: 058
     Dates: start: 201902

REACTIONS (8)
  - Injection site extravasation [Unknown]
  - Glycosylated haemoglobin increased [Unknown]
  - Wrong technique in device usage process [Unknown]
  - Body height decreased [Unknown]
  - Intentional product misuse [Unknown]
  - Abdominal discomfort [Recovered/Resolved]
  - Injection site nodule [Unknown]
  - Incorrect dose administered by device [Unknown]

NARRATIVE: CASE EVENT DATE: 20190520
